FAERS Safety Report 8991522 (Version 1)
Quarter: 2012Q4

REPORT INFORMATION
  Report Type: 
  Country: BR (occurrence: BR)
  Receive Date: 20121231
  Receipt Date: 20121231
  Transmission Date: 20130627
  Serious: Yes (Other)
  Sender: FDA-Public Use
  Company Number: BR-ACCORD-015717

PATIENT
  Age: 35 Year
  Weight: 78.9 kg

DRUGS (7)
  1. ONDANSETRON [Concomitant]
     Route: 042
     Dates: start: 20121130, end: 20121130
  2. TRAMADOL [Concomitant]
     Route: 048
  3. CARBOPLATIN [Concomitant]
     Indication: CHEMOTHERAPY
     Dates: start: 20121109
  4. DEXAMETHASONE [Concomitant]
     Route: 042
     Dates: start: 20121130, end: 20121130
  5. DIPHENHYDRAMINE [Concomitant]
     Route: 042
     Dates: start: 20121130, end: 20121130
  6. PACLITAXEL [Suspect]
     Indication: CHEMOTHERAPY
     Dosage: Second cycle
     Route: 042
     Dates: start: 20121130, end: 20121130
  7. RANITIDINE [Concomitant]
     Route: 042
     Dates: start: 20121130, end: 20121130

REACTIONS (6)
  - Dyspnoea [Recovered/Resolved]
  - Tachycardia [Recovered/Resolved]
  - Erythema [Recovered/Resolved]
  - Abdominal pain [Recovered/Resolved]
  - Back pain [Recovered/Resolved]
  - Muscle spasms [Recovered/Resolved]
